FAERS Safety Report 7591093-1 (Version None)
Quarter: 2011Q3

REPORT INFORMATION
  Report Type: 
  Country: None (occurrence: None)
  Receive Date: 20110705
  Receipt Date: 20110623
  Transmission Date: 20111222
  Serious: No
  Sender: FDA-Public Use
  Company Number: JP-ASTRAZENECA-2011SE23412

PATIENT
  Age: 699 Day
  Sex: Female

DRUGS (4)
  1. MEROPENEM [Suspect]
     Indication: POST PROCEDURAL INFECTION
     Route: 042
     Dates: start: 20110404, end: 20110410
  2. SULFAMETHOXAZOLE [Concomitant]
     Indication: NEUROGENIC BLADDER
     Route: 048
     Dates: start: 20101020, end: 20110420
  3. POLLAKISU [Concomitant]
     Indication: NEUROGENIC BLADDER
     Route: 048
     Dates: start: 20101220
  4. MEROPENEM [Suspect]
     Indication: LIPOMA
     Route: 042
     Dates: start: 20110404, end: 20110410

REACTIONS (1)
  - HEPATIC FUNCTION ABNORMAL [None]
